FAERS Safety Report 13896113 (Version 1)
Quarter: 2017Q3

REPORT INFORMATION
  Report Type: Spontaneous
  Country: US (occurrence: None)
  Receive Date: 20170816
  Receipt Date: 20170816
  Transmission Date: 20171127
  Serious: No
  Sender: FDA-Public Use
  Company Number: None

PATIENT
  Age: 36 Year
  Sex: Male
  Weight: 74.39 kg

DRUGS (1)
  1. BUPRENORPHINE/NALOXONE [Suspect]
     Active Substance: BUPRENORPHINE\NALOXONE
     Indication: DRUG DEPENDENCE
     Dosage: 28/7 MG EVERY DAY SUBLINGUAL
     Route: 060
     Dates: start: 20170413, end: 20170803

REACTIONS (2)
  - Drug withdrawal syndrome [None]
  - Product substitution issue [None]

NARRATIVE: CASE EVENT DATE: 20170413
